FAERS Safety Report 4987093-8 (Version None)
Quarter: 2006Q2

REPORT INFORMATION
  Report Type: 
  Country: None (occurrence: None)
  Receive Date: 20060501
  Receipt Date: 20060421
  Transmission Date: 20061013
  Serious: Yes (Other)
  Sender: FDA-Public Use
  Company Number: ES-GLAXOSMITHKLINE-B0421845A

PATIENT
  Age: 65 Year
  Sex: Female

DRUGS (1)
  1. AVANDAMET [Suspect]
     Route: 048

REACTIONS (1)
  - PANCYTOPENIA [None]
